FAERS Safety Report 9697069 (Version 1)
Quarter: 2013Q4

REPORT INFORMATION
  Report Type: Report from Study
  Country: US (occurrence: US)
  Receive Date: 20131120
  Receipt Date: 20131120
  Transmission Date: 20140711
  Serious: Yes (Other)
  Sender: FDA-Public Use
  Company Number: US-ROCHE-1305779

PATIENT
  Sex: 0

DRUGS (2)
  1. CAPECITABINE [Suspect]
     Indication: PANCREATIC CARCINOMA
     Dosage: EVERY 12 MONDAY TO FRIDAY ON THE DAYS OF RADIATION.
     Route: 065
  2. VORINOSTAT [Suspect]
     Indication: PANCREATIC CARCINOMA
     Dosage: MONDAY TO FRIDAY FOR 4 WEEKS
     Route: 065

REACTIONS (3)
  - Lymphopenia [Unknown]
  - Nausea [Unknown]
  - Fatigue [Unknown]
